FAERS Safety Report 17813508 (Version 2)
Quarter: 2020Q2

REPORT INFORMATION
  Report Type: Spontaneous
  Country: SE (occurrence: SE)
  Receive Date: 20200521
  Receipt Date: 20200601
  Transmission Date: 20200714
  Serious: Yes (Other)
  Sender: FDA-Public Use
  Company Number: SE-MYLANLABS-2020M1039837

PATIENT
  Age: 77 Year
  Sex: Male

DRUGS (4)
  1. FONDAPARINUX [Suspect]
     Active Substance: FONDAPARINUX
     Indication: ANTICOAGULANT THERAPY
     Dosage: UNK
     Route: 065
     Dates: start: 20200319, end: 20200321
  2. BRILIQUE [Suspect]
     Active Substance: TICAGRELOR
     Indication: ACUTE MYOCARDIAL INFARCTION
     Dosage: UNK
     Route: 065
     Dates: start: 20200319
  3. TROMBYL [Suspect]
     Active Substance: ASPIRIN
     Indication: ACUTE MYOCARDIAL INFARCTION
     Dosage: UNK
     Dates: start: 20200319
  4. FONDAPARINUX [Suspect]
     Active Substance: FONDAPARINUX
     Indication: ACUTE MYOCARDIAL INFARCTION

REACTIONS (2)
  - Epistaxis [Not Recovered/Not Resolved]
  - Haemorrhagic disorder [Not Recovered/Not Resolved]

NARRATIVE: CASE EVENT DATE: 20200320
